FAERS Safety Report 5737523-9 (Version None)
Quarter: 2008Q2

REPORT INFORMATION
  Report Type: 
  Country: None (occurrence: None)
  Receive Date: 20080514
  Receipt Date: 20080505
  Transmission Date: 20081010
  Serious: Yes (Other)
  Sender: FDA-Public Use
  Company Number: US-BAYER-200817482NA

PATIENT
  Age: 66 Year
  Sex: Male

DRUGS (4)
  1. LEVITRA [Suspect]
     Indication: ERECTILE DYSFUNCTION
     Route: 048
     Dates: start: 20080311
  2. FLOMAX [Concomitant]
     Dosage: TOTAL DAILY DOSE: 0.4 MG  UNIT DOSE: 0.4 MG
     Route: 048
     Dates: start: 20080211, end: 20080306
  3. FLOMAX [Concomitant]
     Dosage: TOTAL DAILY DOSE: 0.8 MG  UNIT DOSE: 0.4 MG
     Route: 048
     Dates: start: 20080306
  4. MANY BLOOD PRESSURE PILLS [Concomitant]

REACTIONS (3)
  - DIZZINESS [None]
  - HYPOTENSION [None]
  - PRESYNCOPE [None]
